FAERS Safety Report 21337495 (Version 1)
Quarter: 2022Q3

REPORT INFORMATION
  Report Type: Report from Study
  Country: AU (occurrence: AU)
  Receive Date: 20220915
  Receipt Date: 20220915
  Transmission Date: 20221027
  Serious: Yes (Hospitalization, Other)
  Sender: FDA-Public Use
  Company Number: AU-TAKEDA-2022TUS064847

PATIENT
  Age: 39 Year
  Sex: Female

DRUGS (8)
  1. TEDUGLUTIDE [Suspect]
     Active Substance: TEDUGLUTIDE
     Indication: Short-bowel syndrome
     Dosage: 5.00 MILLIGRAM, QD
     Route: 042
     Dates: start: 20200306
  2. TEDUGLUTIDE [Suspect]
     Active Substance: TEDUGLUTIDE
     Indication: Short-bowel syndrome
     Dosage: 5.00 MILLIGRAM, QD
     Route: 042
     Dates: start: 20200306
  3. TEDUGLUTIDE [Suspect]
     Active Substance: TEDUGLUTIDE
     Indication: Short-bowel syndrome
     Dosage: 5.00 MILLIGRAM, QD
     Route: 042
     Dates: start: 20200306
  4. TEDUGLUTIDE [Suspect]
     Active Substance: TEDUGLUTIDE
     Indication: Short-bowel syndrome
     Dosage: 5.00 MILLIGRAM, QD
     Route: 042
     Dates: start: 20200306
  5. ENTYVIO [Concomitant]
     Active Substance: VEDOLIZUMAB
     Indication: Crohn^s disease
     Dosage: 30 MILLIGRAM, Q2WEEKS
     Route: 058
     Dates: start: 2022
  6. FUROSEMIDE [Concomitant]
     Active Substance: FUROSEMIDE
     Indication: Ascites
     Dosage: 40 MILLIGRAM, QD
     Route: 048
  7. SPIRONOLACTONE [Concomitant]
     Active Substance: SPIRONOLACTONE
     Indication: Ascites
     Dosage: 200 MILLIGRAM, QD
     Route: 048
  8. APIXABAN [Concomitant]
     Active Substance: APIXABAN
     Indication: Coagulopathy
     Dosage: 1 DOSAGE FORM, QD
     Route: 048

REACTIONS (1)
  - Oesophageal varices haemorrhage [Recovered/Resolved with Sequelae]

NARRATIVE: CASE EVENT DATE: 20220812
